FAERS Safety Report 12332853 (Version 1)
Quarter: 2016Q2

REPORT INFORMATION
  Report Type: Spontaneous
  Country: US (occurrence: US)
  Receive Date: 20160504
  Receipt Date: 20160504
  Transmission Date: 20160815
  Serious: No
  Sender: FDA-Public Use
  Company Number: US-ROCHE-1713051

PATIENT
  Sex: Female

DRUGS (5)
  1. CRANBERRY. [Concomitant]
     Active Substance: CRANBERRY
  2. LECITHIN [Concomitant]
     Active Substance: LECITHIN
  3. CHOLESTEROL SUPPORT [Concomitant]
  4. ESBRIET [Suspect]
     Active Substance: PIRFENIDONE
     Indication: IDIOPATHIC PULMONARY FIBROSIS
     Dosage: 3 CAPSULES 3 TIMES A DAY
     Route: 048
     Dates: start: 20151130
  5. COLLAGEN [Concomitant]
     Active Substance: COLLAGEN

REACTIONS (1)
  - Liver function test increased [Unknown]
